FAERS Safety Report 5382477-0 (Version None)
Quarter: 2007Q3

REPORT INFORMATION
  Report Type: 
  Country: None (occurrence: None)
  Receive Date: 20070703
  Receipt Date: 20060824
  Transmission Date: 20080115
  Serious: Yes (Other)
  Sender: FDA-Public Use
  Company Number: US-JNJFOC-20060900053

PATIENT
  Age: 54 Year
  Sex: Female
  Weight: 90.7194 kg

DRUGS (10)
  1. MOTRIN IB [Suspect]
     Indication: ARTHRALGIA
     Dosage: 200 MG, 2 IN 1 DAY;
     Dates: start: 20060601, end: 20060601
  2. MOTRIN IB [Suspect]
     Indication: FIBROMYALGIA
     Dosage: 200 MG, 2 IN 1 DAY;
     Dates: start: 20060601, end: 20060601
  3. MOTRIN IB [Suspect]
     Indication: MYALGIA
     Dosage: 200 MG, 2 IN 1 DAY;
     Dates: start: 20060601, end: 20060601
  4. PEG-INTRON [Concomitant]
  5. RIBASPHERE [Concomitant]
  6. MULTIVITAMIN [Concomitant]
  7. TYLENOL (ACETAMINOPHEN) TABLETS [Concomitant]
  8. GLUCOSAMINE (GLUCOSAMINE) [Concomitant]
  9. BENADRYL [Concomitant]
  10. EFFEXOR [Concomitant]

REACTIONS (1)
  - ARRHYTHMIA [None]
